FAERS Safety Report 16305152 (Version 1)
Quarter: 2019Q2

REPORT INFORMATION
  Report Type: Spontaneous
  Country: US (occurrence: US)
  Receive Date: 20190513
  Receipt Date: 20190513
  Transmission Date: 20190711
  Serious: Yes (Other)
  Sender: FDA-Public Use
  Company Number: US-SA-2019SA128804

PATIENT
  Sex: Female

DRUGS (1)
  1. ICY HOT WITH LIDOCAINE PAIN RELIEVING [Suspect]
     Active Substance: LIDOCAINE\MENTHOL

REACTIONS (5)
  - Cough [Unknown]
  - Malaise [Unknown]
  - Application site pain [Unknown]
  - Systemic lupus erythematosus [Unknown]
  - Fibromyalgia [Unknown]
